FAERS Safety Report 7681370-8 (Version None)
Quarter: 2011Q3

REPORT INFORMATION
  Report Type: 
  Country: None (occurrence: None)
  Receive Date: 20110812
  Receipt Date: 20110728
  Transmission Date: 20111222
  Serious: Yes (Other)
  Sender: FDA-Public Use
  Company Number: PHHY2011FI68453

PATIENT
  Age: 27 Year
  Sex: Female

DRUGS (11)
  1. CLOZAPINE [Suspect]
     Dosage: 450 MG
  2. OPAMOX [Concomitant]
     Dosage: 15 MG, ONCE DAILY WHEN NEEDED
  3. ZOLOFT [Concomitant]
     Dosage: 100 MG, ONE TABLET PER DAY
     Route: 048
  4. CLOZAPINE [Suspect]
     Dosage: 550 MG
     Route: 048
     Dates: start: 20110708, end: 20110729
  5. CLOZAPINE [Suspect]
     Route: 048
     Dates: start: 20020301
  6. CLOZAPINE [Suspect]
     Dosage: 300 MG,
     Route: 048
     Dates: start: 20080101
  7. CLOZAPINE [Suspect]
     Dosage: 500 MG,
     Route: 048
     Dates: start: 20110729
  8. OPAMOX [Concomitant]
     Dosage: 7.5 MG, DOSE OF ONE TABLET THREE TIMES A DAY
     Route: 048
  9. FLUANXOL [Concomitant]
     Dosage: 1 MG, ONE TABLET THREE TIMES A DAY
     Route: 048
  10. CLOZAPINE [Suspect]
     Dosage: 400 MG
  11. ZOPINOX [Concomitant]
     Dosage: 7.5 MG, ONCE DAILY WHEN NEEDED

REACTIONS (2)
  - ELECTROCARDIOGRAM QT PROLONGED [None]
  - ANTIPSYCHOTIC DRUG LEVEL INCREASED [None]
